FAERS Safety Report 6676084-7 (Version None)
Quarter: 2010Q2

REPORT INFORMATION
  Report Type: 
  Country: None (occurrence: None)
  Receive Date: 20100412
  Receipt Date: 20100401
  Transmission Date: 20101027
  Serious: Yes (Other)
  Sender: FDA-Public Use
  Company Number: SE-PFIZER INC-2010033357

PATIENT
  Age: 16 Year
  Sex: Male

DRUGS (2)
  1. ZOLOFT [Suspect]
     Indication: POST-TRAUMATIC STRESS DISORDER
     Dosage: 50 MG
  2. SYMBICORT [Concomitant]
     Indication: ASTHMA
     Dosage: UNK

REACTIONS (5)
  - DEPRESSED LEVEL OF CONSCIOUSNESS [None]
  - HALLUCINATION [None]
  - HYPERVENTILATION [None]
  - MUSCLE SPASMS [None]
  - NIGHTMARE [None]
